FAERS Safety Report 19766373 (Version 1)
Quarter: 2021Q3

REPORT INFORMATION
  Report Type: Spontaneous
  Country: US (occurrence: US)
  Receive Date: 20210830
  Receipt Date: 20210830
  Transmission Date: 20211014
  Serious: Yes (Hospitalization)
  Sender: FDA-Public Use
  Company Number: None

PATIENT
  Age: 82 Year
  Sex: Female
  Weight: 68.4 kg

DRUGS (10)
  1. OLANZAPINE. [Concomitant]
     Active Substance: OLANZAPINE
     Dates: start: 20070403
  2. BUPROPION XL [Concomitant]
     Active Substance: BUPROPION
     Dates: start: 20090406
  3. LACTOBACILLUS ACIDOPHILUS [Concomitant]
     Active Substance: LACTOBACILLUS ACIDOPHILUS
     Dates: start: 20100106
  4. FLUTICASONE INHALOR [Concomitant]
     Dates: start: 20170215
  5. MONTELUKAST [Concomitant]
     Active Substance: MONTELUKAST SODIUM
     Dates: start: 20210212
  6. PREDNISONE. [Concomitant]
     Active Substance: PREDNISONE
     Dates: start: 20061012
  7. REGEN?COV [Suspect]
     Active Substance: CASIRIVIMAB\IMDEVIMAB
     Indication: COVID-19
     Dosage: ?          OTHER FREQUENCY:ONCE;?
     Route: 041
     Dates: start: 20210825, end: 20210825
  8. AMLOPIPINE [Concomitant]
     Dates: start: 20070618
  9. SIMVASTATIN. [Concomitant]
     Active Substance: SIMVASTATIN
     Dates: start: 20191107
  10. ALBUTEROL INHALOR [Concomitant]
     Dates: start: 20201130

REACTIONS (11)
  - Hyponatraemia [None]
  - Troponin increased [None]
  - Diarrhoea [None]
  - Fibrin D dimer increased [None]
  - Hypophagia [None]
  - Laboratory test abnormal [None]
  - Nausea [None]
  - Hypoxia [None]
  - Atelectasis [None]
  - Leukocytosis [None]
  - Blood pressure decreased [None]

NARRATIVE: CASE EVENT DATE: 20210825
